FAERS Safety Report 6057584-X (Version None)
Quarter: 2009Q1

REPORT INFORMATION
  Report Type: 
  Country: None (occurrence: None)
  Receive Date: 20090129
  Receipt Date: 20090119
  Transmission Date: 20090719
  Serious: Yes (Disabling)
  Sender: FDA-Public Use
  Company Number: DE-ALLERGAN-0900444US

PATIENT
  Sex: Male

DRUGS (3)
  1. ALPHAGAN [Suspect]
     Indication: GLAUCOMA
     Dosage: 2 DF, BID
     Route: 047
     Dates: start: 20050401, end: 20060201
  2. COSOPT [Concomitant]
     Indication: GLAUCOMA
     Dosage: 2 DF, QD
     Route: 047
     Dates: start: 20000701, end: 20070301
  3. XALATAN [Concomitant]
     Indication: GLAUCOMA
     Dosage: 1 DF, QD
     Route: 047
     Dates: start: 20000701, end: 20070301

REACTIONS (6)
  - DIZZINESS [None]
  - DYSGEUSIA [None]
  - GAIT DISTURBANCE [None]
  - NAUSEA [None]
  - POLYNEUROPATHY [None]
  - TREMOR [None]
